FAERS Safety Report 19861815 (Version 1)
Quarter: 2021Q3

REPORT INFORMATION
  Report Type: Spontaneous
  Country: US (occurrence: US)
  Receive Date: 20210921
  Receipt Date: 20210921
  Transmission Date: 20211014
  Serious: No
  Sender: FDA-Public Use
  Company Number: None

PATIENT
  Age: 68 Year
  Sex: Male
  Weight: 110 kg

DRUGS (20)
  1. POTASSIUM CHLORIDE ER 20MEQ [Concomitant]
  2. ALBUTEROL HFA [Concomitant]
     Active Substance: ALBUTEROL SULFATE
  3. METFORMIN [Concomitant]
     Active Substance: METFORMIN HYDROCHLORIDE
  4. SPIRONOLACTONE 100MG [Concomitant]
     Active Substance: SPIRONOLACTONE
  5. ZOLEDRONIC ACID 4MG/5ML [Concomitant]
  6. ELIQUIS [Concomitant]
     Active Substance: APIXABAN
  7. HYDROCORTISONE ACETATE 1% [Concomitant]
  8. LASIX [Concomitant]
     Active Substance: FUROSEMIDE
  9. OLMESARTAN 5MG [Concomitant]
  10. TAMOXIFEN 20MG [Concomitant]
     Active Substance: TAMOXIFEN
  11. HERCEPTIN [Concomitant]
     Active Substance: TRASTUZUMAB
  12. MAGNESIUM 400MG [Concomitant]
     Active Substance: MAGNESIUM
  13. PROMETHAZINE 25MG [Concomitant]
  14. TOUJEO [Concomitant]
     Active Substance: INSULIN GLARGINE
  15. CAPECITABINE. [Suspect]
     Active Substance: CAPECITABINE
     Indication: BREAST CANCER
     Dosage: ?          OTHER FREQUENCY:BID FOR 14/21 DAYS;?
     Route: 048
     Dates: start: 20210816
  16. ADVAIR DISKUS 250?50MCG/DOSE [Concomitant]
  17. GABAPENTIN 600MG [Concomitant]
     Active Substance: GABAPENTIN
  18. LOSARTAN 50MG [Concomitant]
     Active Substance: LOSARTAN
  19. SYNTHROID [Concomitant]
     Active Substance: LEVOTHYROXINE SODIUM
  20. TUKYSA 150MG [Concomitant]

REACTIONS (3)
  - Renal impairment [None]
  - Diarrhoea [None]
  - Hepatic enzyme increased [None]

NARRATIVE: CASE EVENT DATE: 20210920
